FAERS Safety Report 9587955 (Version 4)
Quarter: 2014Q2

REPORT INFORMATION
  Report Type: Report from Study
  Country: TW (occurrence: TW)
  Receive Date: 20131003
  Receipt Date: 20140408
  Transmission Date: 20141212
  Serious: No
  Sender: FDA-Public Use
  Company Number: PHHY2012TW120560

PATIENT
  Age: 23 Year
  Sex: Male

DRUGS (22)
  1. AMN107 [Suspect]
     Dates: start: 20110630, end: 20120821
  2. AMN107 [Suspect]
     Dosage: UNK
     Dates: start: 20130822, end: 20130918
  3. AMN107 [Suspect]
     Dosage: UNK
     Dates: start: 20120919, end: 20121204
  4. AMN107 [Suspect]
     Dosage: UNK
     Dates: start: 20121209
  5. LOPERAMIDE [Concomitant]
     Indication: IRRITABLE BOWEL SYNDROME
     Dates: start: 20110602, end: 20110615
  6. CATAFLAM [Concomitant]
     Indication: PAIN
     Dates: start: 20120209, end: 20120213
  7. CATAFLAM [Concomitant]
     Indication: DYSURIA
     Dates: start: 20120331, end: 20120407
  8. SECORIN [Concomitant]
     Indication: ANXIETY
     Dates: start: 20120209, end: 20120213
  9. DEXALTIN [Concomitant]
     Indication: MOUTH ULCERATION
     Dates: start: 20120502, end: 20120516
  10. DEXALTIN [Concomitant]
     Dates: start: 20120530, end: 20120613
  11. THIAMPHENICOL [Concomitant]
     Indication: DYSURIA
     Dates: start: 20120331, end: 20120407
  12. BENTYL [Concomitant]
     Indication: ABDOMINAL PAIN
     Dates: start: 20120919, end: 20120921
  13. MUCAINE [Concomitant]
     Indication: ABDOMINAL PAIN
     Dates: start: 20120919, end: 20120921
  14. URSODESOXYCHOLIC ACID [Concomitant]
     Indication: HYPERBILIRUBINAEMIA
     Dates: start: 20120822, end: 20120905
  15. ACTEIN [Concomitant]
     Indication: TRACHEITIS
     Dates: start: 20130508, end: 20130513
  16. BROWN MIXTURE                      /01682301/ [Concomitant]
     Indication: TRACHEITIS
     Dates: start: 20130508, end: 20130513
  17. TRICODEX [Concomitant]
     Indication: ECZEMA
     Dates: start: 20130624, end: 20130708
  18. TRICODEX [Concomitant]
     Indication: FOLLICULITIS
  19. DOXYCYCLINE [Concomitant]
     Indication: ECZEMA
     Dates: start: 20130624, end: 20130708
  20. DOXYCYCLINE [Concomitant]
     Indication: FOLLICULITIS
  21. BOLUZIN [Concomitant]
     Indication: ECZEMA
     Dates: start: 20130624, end: 20130708
  22. BOLUZIN [Concomitant]
     Indication: FOLLICULITIS

REACTIONS (1)
  - Upper respiratory tract infection [Unknown]
